FAERS Safety Report 15947859 (Version 1)
Quarter: 2019Q1

REPORT INFORMATION
  Report Type: Spontaneous
  Country: US (occurrence: US)
  Receive Date: 20190212
  Receipt Date: 20190212
  Transmission Date: 20190417
  Serious: Yes (Hospitalization, Other)
  Sender: FDA-Public Use
  Company Number: US-UNICHEM PHARMACEUTICALS (USA) INC-UCM201902-000046

PATIENT
  Age: 4 Year
  Sex: Female

DRUGS (1)
  1. DIVALPROEX SODIUM DELAYED RELEASE  500 MG TABLETS [Suspect]
     Active Substance: DIVALPROEX SODIUM
     Dosage: 500 MG
     Route: 048

REACTIONS (9)
  - Hypotension [Recovered/Resolved]
  - Acidosis [Recovered/Resolved]
  - Coma [Recovered/Resolved]
  - Toxicity to various agents [Recovered/Resolved]
  - Blood creatine phosphokinase increased [Recovered/Resolved]
  - Transaminases increased [Recovered/Resolved]
  - Hyperammonaemia [Recovered/Resolved]
  - Hypocalcaemia [Recovered/Resolved]
  - Hypernatraemia [Recovered/Resolved]
